FAERS Safety Report 8831123 (Version 1)
Quarter: 2012Q4

REPORT INFORMATION
  Report Type: Spontaneous
  Country: US (occurrence: None)
  Receive Date: 20121005
  Receipt Date: 20121005
  Transmission Date: 20130627
  Serious: No
  Sender: FDA-Public Use
  Company Number: None

PATIENT
  Sex: Female
  Weight: 88.91 kg

DRUGS (1)
  1. LETROZOLE [Suspect]
     Indication: BREAST CARCINOMA
     Route: 048
     Dates: start: 201201, end: 201202

REACTIONS (2)
  - Breast tenderness [None]
  - Product substitution issue [None]
